FAERS Safety Report 6719328-5 (Version None)
Quarter: 2010Q2

REPORT INFORMATION
  Report Type: 
  Country: None (occurrence: None)
  Receive Date: 20100511
  Receipt Date: 20100428
  Transmission Date: 20101027
  Serious: Yes (Hospitalization, Other)
  Sender: FDA-Public Use
  Company Number: PHHY2010GB05124

PATIENT
  Sex: Male

DRUGS (2)
  1. EXJADE [Suspect]
     Indication: THALASSAEMIA
     Dosage: 10 MG/KG, UNK
     Dates: start: 20080401, end: 20090901
  2. EXJADE [Suspect]
     Indication: CHELATION THERAPY
     Dosage: 20 MG/KG, UNK
     Dates: start: 20090901

REACTIONS (7)
  - HAEMATURIA [None]
  - NEPHROLITHIASIS [None]
  - RASH [None]
  - RENAL COLIC [None]
  - SERUM FERRITIN INCREASED [None]
  - STENT PLACEMENT [None]
  - URETERIC STENOSIS [None]
